FAERS Safety Report 10066691 (Version 1)
Quarter: 2014Q2

REPORT INFORMATION
  Report Type: Spontaneous
  Country: FR (occurrence: FR)
  Receive Date: 20140408
  Receipt Date: 20140408
  Transmission Date: 20141212
  Serious: Yes (Hospitalization, Other)
  Sender: FDA-Public Use
  Company Number: FR-GILEAD-2014-0098657

PATIENT
  Age: 47 Year
  Sex: Male

DRUGS (17)
  1. TRUVADA [Suspect]
     Indication: HIV INFECTION
     Route: 048
  2. GENTAMICINE PANPHARMA [Suspect]
     Indication: STAPHYLOCOCCAL SEPSIS
     Dosage: UNK
     Route: 042
     Dates: start: 20140220, end: 20140224
  3. CUBICIN [Suspect]
     Indication: STAPHYLOCOCCAL SEPSIS
     Dosage: UNK
     Route: 042
     Dates: start: 20140220, end: 20140224
  4. CEFTRIAXONE [Suspect]
     Indication: STAPHYLOCOCCAL SEPSIS
     Dosage: UNK
     Route: 042
     Dates: start: 20140220, end: 20140221
  5. PACLITAXEL [Concomitant]
     Indication: BRONCHIAL CARCINOMA
     Dosage: UNK, Q1WK
  6. PREZISTA [Concomitant]
  7. NORVIR [Concomitant]
  8. PHOCYTAN [Concomitant]
  9. OXYNORM [Concomitant]
  10. DUPHALAC                           /00163401/ [Concomitant]
  11. PARACETAMOL [Concomitant]
  12. OXYCONTIN [Concomitant]
  13. LAROXYL [Concomitant]
  14. VENLAFAXINE ARROW [Concomitant]
  15. METHADONE [Concomitant]
  16. PLAVIX [Concomitant]
  17. NICOPATCH [Concomitant]

REACTIONS (1)
  - Nephritic syndrome [Recovered/Resolved]
